FAERS Safety Report 4422566-8 (Version None)
Quarter: 2004Q3

REPORT INFORMATION
  Report Type: 
  Country: None (occurrence: None)
  Receive Date: 20040810
  Receipt Date: 20040630
  Transmission Date: 20050211
  Serious: Yes (Other)
  Sender: FDA-Public Use
  Company Number: PHBS2004BE08919

PATIENT
  Age: 30 Year
  Sex: Male

DRUGS (3)
  1. TRILEPTAL [Suspect]
     Indication: FRONTAL LOBE EPILEPSY
     Dosage: 900 MG/D
     Route: 065
  2. TOPAMAX [Concomitant]
  3. DIPHANTOINE [Concomitant]
     Dosage: 300 MG/D

REACTIONS (2)
  - DEPRESSION [None]
  - SOMNOLENCE [None]
